FAERS Safety Report 7415353-X (Version None)
Quarter: 2011Q2

REPORT INFORMATION
  Report Type: 
  Country: None (occurrence: None)
  Receive Date: 20110414
  Receipt Date: 20110413
  Transmission Date: 20111010
  Serious: Yes (Hospitalization)
  Sender: FDA-Public Use
  Company Number: A0920098A

PATIENT
  Age: 41 Year
  Sex: Male
  Weight: 76.5 kg

DRUGS (9)
  1. BLINDED TRIAL MEDICATION [Suspect]
     Dates: start: 20091215
  2. GLIMEPIRIDE [Suspect]
     Dosage: 4MG PER DAY
     Route: 048
  3. SIMVASTATIN [Concomitant]
  4. MULTI-VITAMIN [Concomitant]
  5. VITAMIN B-12 [Concomitant]
  6. METFORMIN [Suspect]
     Route: 048
  7. GOODY POWDER [Suspect]
     Indication: HEADACHE
     Route: 048
     Dates: start: 20110221, end: 20110224
  8. GLIPIZIDE [Concomitant]
  9. FISH OIL [Concomitant]

REACTIONS (1)
  - MALAISE [None]
